FAERS Safety Report 5469433-9 (Version None)
Quarter: 2007Q3

REPORT INFORMATION
  Report Type: 
  Country: None (occurrence: None)
  Receive Date: 20070927
  Receipt Date: 20070925
  Transmission Date: 20080115
  Serious: Yes (Other)
  Sender: FDA-Public Use
  Company Number: DK-ASTRAZENECA-2007SE03267

PATIENT
  Age: 12835 Day
  Sex: Female

DRUGS (2)
  1. SPIROCORT [Suspect]
     Route: 055
  2. BRICANYL [Suspect]
     Indication: EXERCISE ADEQUATE
     Route: 055

REACTIONS (2)
  - ABORTION SPONTANEOUS [None]
  - DRUG EXPOSURE DURING PREGNANCY [None]
